FAERS Safety Report 11143019 (Version 2)
Quarter: 2015Q2

REPORT INFORMATION
  Report Type: Spontaneous
  Country: AR (occurrence: AR)
  Receive Date: 20150528
  Receipt Date: 20150622
  Transmission Date: 20150821
  Serious: Yes (Other)
  Sender: FDA-Public Use
  Company Number: AR-UCBSA-2015017265

PATIENT
  Age: 4 Year
  Sex: Female
  Weight: 20 kg

DRUGS (2)
  1. KEPPRA [Suspect]
     Active Substance: LEVETIRACETAM
     Indication: ATYPICAL BENIGN PARTIAL EPILEPSY
     Dosage: UNKNOWN DOSE
     Route: 048
     Dates: start: 201503, end: 2015
  2. KEPPRA [Suspect]
     Active Substance: LEVETIRACETAM
     Dosage: 1250 MG PER DAY (INCREASED DOSE)
     Route: 048
     Dates: start: 2015, end: 2015

REACTIONS (2)
  - Bronchospasm [Recovered/Resolved]
  - Cough [Recovered/Resolved]

NARRATIVE: CASE EVENT DATE: 2015
